FAERS Safety Report 26065279 (Version 1)
Quarter: 2025Q4

REPORT INFORMATION
  Report Type: Spontaneous
  Country: EU (occurrence: EU)
  Receive Date: 20251119
  Receipt Date: 20251119
  Transmission Date: 20260117
  Serious: Yes (Other)
  Sender: PURDUE
  Company Number: EU-NAPPMUNDI-GBR-2025-0130489

PATIENT
  Age: 57 Year
  Sex: Male

DRUGS (4)
  1. MORPHINE SULFATE [Suspect]
     Active Substance: MORPHINE SULFATE
     Indication: Cancer pain
     Dosage: VIA A 40 ML PUMP
     Route: 038
  2. MORPHINE SULFATE [Suspect]
     Active Substance: MORPHINE SULFATE
     Indication: Cancer pain
     Dosage: VIA A 40 ML PUMP
     Route: 038
  3. ROPIVACAINE [Suspect]
     Active Substance: ROPIVACAINE
     Indication: Cancer pain
     Dosage: 10% VIA A 40 ML PUMP
     Route: 038
  4. ROPIVACAINE [Suspect]
     Active Substance: ROPIVACAINE
     Dosage: 2ML OF 7.5%
     Route: 038

REACTIONS (6)
  - Hypoxia [Recovered/Resolved]
  - Respiratory failure [Recovered/Resolved]
  - Accidental high spinal anaesthesia [Recovered/Resolved]
  - Hypotension [Recovered/Resolved]
  - Motor dysfunction [Recovered/Resolved]
  - Inadequate analgesia [Unknown]
